FAERS Safety Report 25929398 (Version 5)
Quarter: 2025Q4

REPORT INFORMATION
  Report Type: Report from Study
  Country: US (occurrence: US)
  Receive Date: 20251016
  Receipt Date: 20251218
  Transmission Date: 20260118
  Serious: Yes (Other)
  Sender: ACADIA PHARMACEUTICALS
  Company Number: US-ACADIA PHARMACEUTICALS INC.-ACA-2025-PIM-011235

PATIENT
  Age: 83 Year
  Sex: Female

DRUGS (19)
  1. NUPLAZID [Suspect]
     Active Substance: PIMAVANSERIN TARTRATE
     Indication: Parkinson^s disease psychosis
     Dosage: 34 MILLIGRAM, QD
     Route: 048
     Dates: start: 202504
  2. AMLODIPINE [Concomitant]
     Active Substance: AMLODIPINE BESYLATE
  3. VITAMIN C [Concomitant]
     Active Substance: ASCORBIC ACID
  4. DIETARY SUPPLEMENT [Concomitant]
     Active Substance: DIETARY SUPPLEMENT
  5. SINEMET [Concomitant]
     Active Substance: CARBIDOPA\LEVODOPA
  6. CEPHALEXIN [Concomitant]
     Active Substance: CEPHALEXIN
  7. VITAMIN D3 [Concomitant]
     Active Substance: CHOLECALCIFEROL
  8. DEMANNOSE [Concomitant]
     Active Substance: DEMANNOSE
  9. ESOMEPRAZOLE MAGNESIUM [Concomitant]
     Active Substance: ESOMEPRAZOLE MAGNESIUM
  10. ESTRADIOL [Concomitant]
     Active Substance: ESTRADIOL
  11. FERROUS SULFATE [Concomitant]
     Active Substance: FERROUS SULFATE
  12. GABAPENTIN [Concomitant]
     Active Substance: GABAPENTIN
  13. ACETAMINOPHEN\HYDROCODONE [Concomitant]
     Active Substance: ACETAMINOPHEN\HYDROCODONE
  14. LACTOBAC [BIFIDOBACTERIUM BIFIDUM;LACTOBACILLUS RHAMNOSUS] [Concomitant]
  15. MELATONIN [Concomitant]
     Active Substance: MELATONIN
  16. MEMANTINE [Concomitant]
     Active Substance: MEMANTINE
  17. METHIMAZOLE [Concomitant]
     Active Substance: METHIMAZOLE
  18. PRAMIPEXOLE [Concomitant]
     Active Substance: PRAMIPEXOLE
  19. RIVASTIGMINE [Concomitant]
     Active Substance: RIVASTIGMINE

REACTIONS (2)
  - Hallucination [Not Recovered/Not Resolved]
  - Delusion [Not Recovered/Not Resolved]

NARRATIVE: CASE EVENT DATE: 20250901
